FAERS Safety Report 5773810-6 (Version None)
Quarter: 2008Q2

REPORT INFORMATION
  Report Type: 
  Country: None (occurrence: None)
  Receive Date: 20080616
  Receipt Date: 20080606
  Transmission Date: 20081010
  Serious: Yes (Hospitalization)
  Sender: FDA-Public Use
  Company Number: ES-ABBOTT-08P-144-0455775-00

PATIENT
  Age: 50 Year
  Sex: Male
  Weight: 87 kg

DRUGS (5)
  1. HUMIRA [Suspect]
     Indication: CROHN'S DISEASE
     Dosage: 1ST DOSE 80 MG
     Route: 058
     Dates: start: 20080211
  2. HUMIRA [Suspect]
     Dosage: 2ND DOSE 40 MG
     Route: 058
     Dates: end: 20080225
  3. AZATHIOPRINE [Concomitant]
     Indication: DRUG USE FOR UNKNOWN INDICATION
     Dosage: 200MG DAILY DOSE
     Route: 048
     Dates: start: 19950101
  4. RANITIDINA [Concomitant]
     Indication: DRUG USE FOR UNKNOWN INDICATION
     Dosage: 150MG DAILY DOSE
     Route: 048
     Dates: start: 19950101
  5. NAPROXENO [Concomitant]
     Indication: DRUG USE FOR UNKNOWN INDICATION
     Dosage: {500 MILLIGRAMS DAILY
     Route: 048
     Dates: start: 19970101

REACTIONS (1)
  - PULMONARY EMBOLISM [None]
